FAERS Safety Report 7654964-3 (Version None)
Quarter: 2011Q3

REPORT INFORMATION
  Report Type: 
  Country: None (occurrence: None)
  Receive Date: 20110728
  Receipt Date: 20110712
  Transmission Date: 20111222
  Serious: Yes (Other)
  Sender: FDA-Public Use
  Company Number: 2011MA008718

PATIENT
  Age: 44 Year
  Sex: Male

DRUGS (1)
  1. CARBAMAZEPINE [Suspect]
     Indication: MANIA

REACTIONS (8)
  - HEPATITIS [None]
  - LEUKOCYTOSIS [None]
  - EOSINOPHILIA [None]
  - HYPERPYREXIA [None]
  - HUMAN HERPES VIRUS 6 SEROLOGY POSITIVE [None]
  - RASH MACULO-PAPULAR [None]
  - ERYTHEMA [None]
  - LARYNGEAL OEDEMA [None]
